FAERS Safety Report 21844844 (Version 2)
Quarter: 2023Q1

REPORT INFORMATION
  Report Type: Report from Study
  Country: GB (occurrence: GB)
  Receive Date: 20230110
  Receipt Date: 20230317
  Transmission Date: 20230417
  Serious: Yes (Hospitalization)
  Sender: FDA-Public Use
  Company Number: GB-002147023-NVSC2023GB003389

PATIENT
  Age: 86 Year
  Sex: Male
  Weight: 85 kg

DRUGS (1)
  1. LUTATHERA [Suspect]
     Active Substance: LUTETIUM OXODOTREOTIDE LU-177
     Indication: Neuroendocrine tumour
     Dosage: UNK (CYCLE 1)
     Route: 042
     Dates: start: 20220518

REACTIONS (4)
  - Pancytopenia [Recovering/Resolving]
  - Acute kidney injury [Not Recovered/Not Resolved]
  - Oedema [Recovering/Resolving]
  - Bradycardia [Recovering/Resolving]

NARRATIVE: CASE EVENT DATE: 20220720
